FAERS Safety Report 5186373-3 (Version None)
Quarter: 2006Q4

REPORT INFORMATION
  Report Type: 
  Country: None (occurrence: None)
  Receive Date: 20061220
  Receipt Date: 20061128
  Transmission Date: 20070319
  Serious: Yes (Other)
  Sender: FDA-Public Use
  Company Number: DE-ELI_LILLY_AND_COMPANY-DE200612000696

PATIENT
  Age: 39 Year
  Sex: Female

DRUGS (3)
  1. CYMBALTA [Suspect]
     Indication: DEPRESSION
     Dosage: 30 MG, DAILY (1/D)
     Dates: start: 20061122, end: 20061123
  2. PROMETAZIN [Concomitant]
     Dosage: UNK, AS NEEDED
     Dates: end: 20061113
  3. DOXEPIN HCL [Concomitant]
     Dosage: UNK, AS NEEDED
     Dates: end: 20061113

REACTIONS (5)
  - ABNORMAL SENSATION IN EYE [None]
  - CIRCULATORY COLLAPSE [None]
  - FEELING ABNORMAL [None]
  - HYPERVENTILATION [None]
  - MYDRIASIS [None]
